FAERS Safety Report 8943581 (Version 2)
Quarter: 2012Q4

REPORT INFORMATION
  Report Type: 
  Country: US (occurrence: US)
  Receive Date: 20121204
  Receipt Date: 20121220
  Transmission Date: 20130627
  Serious: No
  Sender: FDA-Public Use
  Company Number: US-PFIZER INC-2012300263

PATIENT
  Sex: Female

DRUGS (10)
  1. SUTENT [Suspect]
     Dosage: 12.5 mg, daily
  2. SUTENT [Suspect]
     Dosage: 12.5 mg alternating with 25 mg
  3. SUTENT [Suspect]
     Dosage: 25 mg, 1x/day
  4. SUTENT [Suspect]
     Dosage: 25 mg alternating with 37.5 mg
  5. OCTREOTIDE [Concomitant]
     Dosage: UNK
  6. CALCIUM [Concomitant]
     Dosage: UNK
  7. GLUCOSAMINE [Concomitant]
     Dosage: UNK
  8. CHAMOMILE [Concomitant]
  9. GREEN TEA EXTRACT [Concomitant]
  10. GINSENG [Concomitant]

REACTIONS (5)
  - Disease progression [Unknown]
  - Primitive neuroectodermal tumour [Unknown]
  - Skin ulcer [Recovering/Resolving]
  - Skin ulcer [Recovering/Resolving]
  - Stomatitis [Recovering/Resolving]
